FAERS Safety Report 15917590 (Version 1)
Quarter: 2019Q1

REPORT INFORMATION
  Report Type: Report from Study
  Country: IL (occurrence: IL)
  Receive Date: 20190205
  Receipt Date: 20190205
  Transmission Date: 20190417
  Serious: Yes (Hospitalization)
  Sender: FDA-Public Use
  Company Number: IL-SA-2018SA250908

PATIENT
  Age: 71 Year
  Sex: Female

DRUGS (2)
  1. INSULIN GLARGINE/LIXISENATIDE [Suspect]
     Active Substance: INSULIN GLARGINE\LIXISENATIDE
     Dosage: 40 DOSE STEP, QD
     Route: 058
  2. INSULIN GLARGINE/LIXISENATIDE [Suspect]
     Active Substance: INSULIN GLARGINE\LIXISENATIDE
     Dosage: 38 DOSE STEPS, QD
     Route: 058
     Dates: start: 20180904

REACTIONS (4)
  - Pneumonia [Recovered/Resolved]
  - Blood glucose abnormal [Recovered/Resolved]
  - Intentional product misuse [Unknown]
  - Product dose omission [Unknown]
